FAERS Safety Report 8972354 (Version 2)
Quarter: 2012Q4

REPORT INFORMATION
  Report Type: 
  Country: JP (occurrence: JP)
  Receive Date: 20121219
  Receipt Date: 20121227
  Transmission Date: 20130627
  Serious: Yes (Life-Threatening, Hospitalization)
  Sender: FDA-Public Use
  Company Number: JP-BAYER-2012-129570

PATIENT
  Age: 66 Year
  Sex: Male
  Weight: 50 kg

DRUGS (8)
  1. NEXAVAR [Suspect]
     Indication: CARCINOMA HEPATOCELLULAR
     Dosage: 400 mg, QD
     Route: 048
     Dates: start: 20121107, end: 20121205
  2. NEXAVAR [Suspect]
     Indication: CARCINOMA HEPATOCELLULAR
     Dosage: 400 mg, BID
     Route: 048
     Dates: start: 20121206, end: 20121209
  3. KERATINAMIN [Concomitant]
     Indication: PROPHYLAXIS
     Dosage: UNK
     Route: 061
     Dates: start: 20121107, end: 20121209
  4. ANTEBATE [Concomitant]
     Indication: PROPHYLAXIS
     Dosage: UNK
     Route: 061
     Dates: start: 20121107, end: 20121209
  5. PARIET [Concomitant]
     Dosage: Daily dose 20 mg
     Route: 048
     Dates: end: 20121205
  6. HERBAL PREPARATION [Concomitant]
     Dosage: Daily dose 15 g
     Route: 048
  7. NEXIUM [Concomitant]
     Dosage: Daily dose 20 mg
     Route: 048
     Dates: start: 20121206
  8. METHYCOBAL [Concomitant]
     Dosage: Daily dose 1500 ?g
     Route: 048

REACTIONS (3)
  - Cerebral infarction [Unknown]
  - Dysphonia [Recovered/Resolved]
  - Oropharyngeal pain [Recovered/Resolved]
